FAERS Safety Report 4629641-3 (Version None)
Quarter: 2005Q2

REPORT INFORMATION
  Report Type: 
  Country: None (occurrence: None)
  Receive Date: 20050406
  Receipt Date: 20050323
  Transmission Date: 20051028
  Serious: Yes (Hospitalization)
  Sender: FDA-Public Use
  Company Number: 2003AP02076

PATIENT
  Age: 58 Year
  Sex: Female
  Weight: 50 kg

DRUGS (7)
  1. IRESSA [Suspect]
     Indication: NEOPLASM
     Dosage: 500 MG DAILY PO
     Route: 048
  2. DAFALGAN [Concomitant]
  3. LEXOTAN [Concomitant]
  4. MOTILIUM [Concomitant]
  5. CLIMEN [Concomitant]
  6. MS CONTIN [Concomitant]
  7. INDOTECHAN [Concomitant]

REACTIONS (1)
  - DYSPNOEA [None]
